FAERS Safety Report 8790289 (Version 1)
Quarter: 2012Q4

REPORT INFORMATION
  Report Type: 
  Country: CO (occurrence: CO)
  Receive Date: 20120917
  Receipt Date: 20120917
  Transmission Date: 20130627
  Serious: Yes (Other)
  Sender: FDA-Public Use
  Company Number: PHHY2012CO079840

PATIENT
  Age: 7 Year
  Sex: Male

DRUGS (1)
  1. OMNITROPE [Suspect]
     Route: 030

REACTIONS (6)
  - Renal pain [Unknown]
  - Hordeolum [Unknown]
  - Eye swelling [Unknown]
  - Contusion [Unknown]
  - Urine analysis abnormal [Unknown]
  - Decreased appetite [Unknown]
